FAERS Safety Report 7913372-8 (Version None)
Quarter: 2011Q4

REPORT INFORMATION
  Report Type: 
  Country: None (occurrence: None)
  Receive Date: 20111114
  Receipt Date: 20111107
  Transmission Date: 20120403
  Serious: Yes (Death, Life-Threatening, Hospitalization, Other)
  Sender: FDA-Public Use
  Company Number: PE-BRISTOL-MYERS SQUIBB COMPANY-16009177

PATIENT
  Age: 69 Year
  Sex: Male
  Weight: 59 kg

DRUGS (12)
  1. BLINDED: PLACEBO [Suspect]
     Indication: TYPE 2 DIABETES MELLITUS
     Route: 048
     Dates: start: 20100826, end: 20110823
  2. AMITRIPTYLINE HCL [Concomitant]
     Route: 048
     Dates: start: 20110410
  3. METFORMIN HCL [Suspect]
     Indication: TYPE 2 DIABETES MELLITUS
     Dosage: PRIOR TO RANDOMIZATION
     Dates: end: 20110409
  4. FLUOXETINE HCL [Concomitant]
     Dates: start: 20110810, end: 20110824
  5. ENALAPRIL MALEATE [Concomitant]
     Dates: start: 20100715
  6. ASPIRIN [Concomitant]
     Dates: start: 20100708
  7. ATORVASTATIN [Concomitant]
     Dates: start: 20100824
  8. SAXAGLIPTIN [Suspect]
     Indication: TYPE 2 DIABETES MELLITUS
     Route: 048
     Dates: start: 20100826, end: 20110823
  9. NPH INSULIN [Suspect]
     Indication: TYPE 2 DIABETES MELLITUS
     Dosage: 20IU:10APR-08MAY11, 16IU:09MAY-05JUN11, 12IU:06JUN-03JUL11, 14IU:04JUL-ONG.
     Route: 058
     Dates: start: 20110410
  10. CLONAZEPAM [Concomitant]
     Dates: start: 20110718
  11. SODIUM CHLORIDE [Concomitant]
     Dates: start: 20110810, end: 20110810
  12. GLYBURIDE [Suspect]
     Indication: TYPE 2 DIABETES MELLITUS
     Dosage: 1DF: 5MG/DL
     Dates: start: 20110516

REACTIONS (4)
  - DIABETES MELLITUS [None]
  - INFECTIOUS PERITONITIS [None]
  - PNEUMONIA [None]
  - RETROPERITONEAL NEOPLASM [None]
